FAERS Safety Report 19302773 (Version 3)
Quarter: 2021Q2

REPORT INFORMATION
  Report Type: Spontaneous
  Country: JP (occurrence: JP)
  Receive Date: 20210525
  Receipt Date: 20210602
  Transmission Date: 20210717
  Serious: Yes (Life-Threatening, Hospitalization)
  Sender: FDA-Public Use
  Company Number: JP-PFIZER INC-2021537979

PATIENT
  Age: 72 Year
  Sex: Female

DRUGS (2)
  1. PACLITAXEL. [Suspect]
     Active Substance: PACLITAXEL
     Indication: ENDOMETRIAL CANCER STAGE II
     Dosage: 175 MG/M2, CYCLIC; 3?H INFUSION
  2. CARBOPLATIN. [Suspect]
     Active Substance: CARBOPLATIN
     Indication: ENDOMETRIAL CANCER STAGE III
     Dosage: CYCLIC (5 MG/ML/MIN)

REACTIONS (1)
  - Neutropenic colitis [Recovered/Resolved]
